FAERS Safety Report 9694256 (Version 2)
Quarter: 2013Q4

REPORT INFORMATION
  Report Type: Spontaneous
  Country: US (occurrence: US)
  Receive Date: 20131118
  Receipt Date: 20131126
  Transmission Date: 20140711
  Serious: No
  Sender: FDA-Public Use
  Company Number: US-PFIZER INC-2013327235

PATIENT
  Sex: 0

DRUGS (1)
  1. TOVIAZ [Suspect]
     Dosage: UNK

REACTIONS (3)
  - Drug effect incomplete [Unknown]
  - Dry mouth [Unknown]
  - Mouth breathing [Unknown]
